FAERS Safety Report 19097836 (Version 1)
Quarter: 2021Q2

REPORT INFORMATION
  Report Type: Spontaneous
  Country: US (occurrence: US)
  Receive Date: 20210406
  Receipt Date: 20210406
  Transmission Date: 20210717
  Serious: Yes (Life-Threatening, Hospitalization, Disabling)
  Sender: FDA-Public Use
  Company Number: None

PATIENT
  Age: 40 Year
  Sex: Male
  Weight: 112.5 kg

DRUGS (2)
  1. TBD [Concomitant]
     Active Substance: CALCIUM CARBONATE
  2. OFLOXACIN. [Suspect]
     Active Substance: OFLOXACIN
     Indication: GASTROENTERITIS
     Route: 048
     Dates: start: 20180607, end: 20180610

REACTIONS (2)
  - Adverse drug reaction [None]
  - Disability [None]

NARRATIVE: CASE EVENT DATE: 20180607
